FAERS Safety Report 7434424-5 (Version None)
Quarter: 2011Q2

REPORT INFORMATION
  Report Type: 
  Country: None (occurrence: None)
  Receive Date: 20110420
  Receipt Date: 20110420
  Transmission Date: 20111010
  Serious: Yes (Hospitalization)
  Sender: FDA-Public Use
  Company Number: None

PATIENT
  Sex: Male
  Weight: 79 kg

DRUGS (4)
  1. CYCLOPHOSPHAMIDE [Suspect]
     Dosage: 1940 MG
  2. CYTARABINE [Suspect]
     Dosage: 1168 MG
  3. METHOTREXATE [Suspect]
     Dosage: 60 MG
  4. MERCAPTOPURINE [Suspect]
     Dosage: 1750 MG

REACTIONS (8)
  - FEBRILE NEUTROPENIA [None]
  - HAEMOGLOBIN DECREASED [None]
  - BLOOD FIBRINOGEN DECREASED [None]
  - WHITE BLOOD CELL COUNT DECREASED [None]
  - RHINORRHOEA [None]
  - PLATELET COUNT DECREASED [None]
  - HEADACHE [None]
  - ABDOMINAL PAIN [None]
